FAERS Safety Report 8322049-9 (Version None)
Quarter: 2012Q2

REPORT INFORMATION
  Report Type: 
  Country: None (occurrence: None)
  Receive Date: 20120426
  Receipt Date: 20120419
  Transmission Date: 20120825
  Serious: Yes (Hospitalization, Other)
  Sender: FDA-Public Use
  Company Number: ENTC2009-0378

PATIENT
  Age: 78 Year
  Sex: Male

DRUGS (5)
  1. LYRICA [Concomitant]
  2. STALEVO 100 [Suspect]
     Dosage: SEE IMAGE
     Dates: end: 20110101
  3. STALEVO 100 [Suspect]
     Dosage: SEE IMAGE
     Dates: end: 20090101
  4. ATIVAN [Concomitant]
  5. ANTIHYPERTENSIVES [Concomitant]

REACTIONS (11)
  - ANXIETY [None]
  - INSOMNIA [None]
  - AGITATION [None]
  - NIGHTMARE [None]
  - MUSCLE RIGIDITY [None]
  - DRUG EFFECT DECREASED [None]
  - MUSCLE TWITCHING [None]
  - DEPRESSION [None]
  - HERPES ZOSTER [None]
  - TREMOR [None]
  - OVERDOSE [None]
